FAERS Safety Report 22217660 (Version 2)
Quarter: 2023Q2

REPORT INFORMATION
  Report Type: Report from Study
  Country: US (occurrence: US)
  Receive Date: 20230417
  Receipt Date: 20230503
  Transmission Date: 20230722
  Serious: Yes (Hospitalization, Other)
  Sender: FDA-Public Use
  Company Number: US-UCBSA-2023018964

PATIENT
  Age: 11 Year
  Sex: Male

DRUGS (1)
  1. FINTEPLA [Suspect]
     Active Substance: FENFLURAMINE
     Indication: Product used for unknown indication
     Dosage: 4.5 MILLILITER, 2X/DAY (BID)

REACTIONS (2)
  - Brain operation [Not Recovered/Not Resolved]
  - Deep brain stimulation [Not Recovered/Not Resolved]

NARRATIVE: CASE EVENT DATE: 20230410
